FAERS Safety Report 7149365-0 (Version None)
Quarter: 2010Q4

REPORT INFORMATION
  Report Type: 
  Country: None (occurrence: None)
  Receive Date: 20101209
  Receipt Date: 20100813
  Transmission Date: 20110411
  Serious: No
  Sender: FDA-Public Use
  Company Number: US-KINGPHARMUSA00001-K201001028

PATIENT
  Age: 71 Year
  Sex: Female

DRUGS (4)
  1. EMBEDA [Suspect]
     Indication: PAIN
     Dosage: 30 MG, BID
     Route: 048
     Dates: start: 20100810, end: 20100812
  2. SYNTHROID [Concomitant]
     Indication: HYPOTHYROIDISM
     Dosage: UNK
     Route: 048
  3. MORPHINE [Concomitant]
     Indication: BREAKTHROUGH PAIN
     Dosage: 15 MG QID, PRN
     Route: 048
  4. MORPHINE [Concomitant]
     Dosage: 30 MG, BID, PRN

REACTIONS (5)
  - ACTIVITIES OF DAILY LIVING IMPAIRED [None]
  - AGEUSIA [None]
  - DECREASED APPETITE [None]
  - DRUG INEFFECTIVE [None]
  - MALAISE [None]
